FAERS Safety Report 18449400 (Version 3)
Quarter: 2020Q4

REPORT INFORMATION
  Report Type: Report from Study
  Country: US (occurrence: US)
  Receive Date: 20201030
  Receipt Date: 20201111
  Transmission Date: 20210114
  Serious: Yes (Hospitalization)
  Sender: FDA-Public Use
  Company Number: US-JNJFOC-20201036344

PATIENT
  Age: 7 Year
  Sex: Female

DRUGS (13)
  1. PREDNISONE. [Suspect]
     Active Substance: PREDNISONE
     Route: 065
  2. BIOTIN [Concomitant]
     Active Substance: BIOTIN
  3. CLOBETASOL [Concomitant]
     Active Substance: CLOBETASOL
  4. VITAMIN D                          /00107901/ [Concomitant]
     Active Substance: ERGOCALCIFEROL
  5. MULTIVITAMIN                       /00097801/ [Concomitant]
     Active Substance: VITAMINS
  6. BENEFIBER                          /00677201/ [Concomitant]
     Active Substance: ICODEXTRIN
  7. VITAMIN-E                          /00110502/ [Concomitant]
  8. COLESEVELAM [Concomitant]
     Active Substance: COLESEVELAM
     Indication: INFLAMMATORY BOWEL DISEASE
  9. HUMIRA [Suspect]
     Active Substance: ADALIMUMAB
     Indication: INFLAMMATORY BOWEL DISEASE
     Route: 065
     Dates: start: 20170713
  10. INFLIXIMAB, RECOMBINANT [Suspect]
     Active Substance: INFLIXIMAB
     Indication: INFLAMMATORY BOWEL DISEASE
     Route: 042
     Dates: start: 20160706, end: 20170330
  11. CANAKINUMAB. [Suspect]
     Active Substance: CANAKINUMAB
     Indication: INFLAMMATORY BOWEL DISEASE
     Route: 065
     Dates: start: 20180416
  12. CANAKINUMAB. [Suspect]
     Active Substance: CANAKINUMAB
     Route: 065
     Dates: start: 202001
  13. LOPERAMIDE [Concomitant]
     Active Substance: LOPERAMIDE
     Indication: INFLAMMATORY BOWEL DISEASE

REACTIONS (2)
  - Oropharyngeal candidiasis [Recovered/Resolved]
  - Pharyngitis streptococcal [Recovered/Resolved with Sequelae]

NARRATIVE: CASE EVENT DATE: 20201004
